FAERS Safety Report 8013485-9 (Version None)
Quarter: 2011Q4

REPORT INFORMATION
  Report Type: 
  Country: None (occurrence: None)
  Receive Date: 20111229
  Receipt Date: 20111222
  Transmission Date: 20120403
  Serious: Yes (Hospitalization, Disabling)
  Sender: FDA-Public Use
  Company Number: DE-TEVA-314916GER

PATIENT
  Age: 75 Year
  Sex: Female
  Weight: 55 kg

DRUGS (6)
  1. GABAPENTIN [Suspect]
     Indication: NEUROPATHY PERIPHERAL
     Dosage: 1800 MILLIGRAM;
     Route: 048
     Dates: start: 20110801, end: 20110804
  2. MARCUMAR [Concomitant]
  3. AMITRIPTYLIN 25 [Concomitant]
     Dosage: 25 MILLIGRAM;
     Route: 048
  4. METOPROLOL 95 [Concomitant]
     Dosage: .5 DOSAGE FORMS;
     Route: 048
  5. OMEPRAZOL 20 [Concomitant]
     Route: 048
  6. DUROGESIC 125 [Concomitant]
     Route: 062

REACTIONS (1)
  - RHABDOMYOLYSIS [None]
